FAERS Safety Report 16898136 (Version 1)
Quarter: 2019Q4

REPORT INFORMATION
  Report Type: Spontaneous
  Country: US (occurrence: US)
  Receive Date: 20191009
  Receipt Date: 20191009
  Transmission Date: 20200122
  Serious: Yes (Hospitalization)
  Sender: FDA-Public Use
  Company Number: US-BION-008286

PATIENT
  Age: 33 Year
  Sex: Female

DRUGS (1)
  1. VALPROIC ACID. [Suspect]
     Active Substance: VALPROIC ACID
     Indication: SEIZURE

REACTIONS (5)
  - Thrombocytopenia [Recovered/Resolved]
  - Arrhythmia [Recovered/Resolved]
  - Hyperammonaemia [Recovered/Resolved]
  - Metabolic encephalopathy [Recovered/Resolved]
  - Overdose [Unknown]
